FAERS Safety Report 16704272 (Version 1)
Quarter: 2019Q3

REPORT INFORMATION
  Report Type: Spontaneous
  Country: FR (occurrence: FR)
  Receive Date: 20190814
  Receipt Date: 20190814
  Transmission Date: 20191004
  Serious: Yes (Hospitalization)
  Sender: FDA-Public Use
  Company Number: FR-MYLANLABS-2019M1075282

PATIENT
  Age: 74 Year
  Sex: Female

DRUGS (2)
  1. FENOFIBRATE. [Suspect]
     Active Substance: FENOFIBRATE
     Indication: DYSLIPIDAEMIA
     Dosage: 145 MILLIGRAM, Q3D
     Route: 048
     Dates: start: 201902, end: 20190210
  2. REPAGLINIDE. [Concomitant]
     Active Substance: REPAGLINIDE

REACTIONS (5)
  - Overdose [Recovered/Resolved]
  - Gamma-glutamyltransferase increased [Recovering/Resolving]
  - Medication error [Recovered/Resolved]
  - Transaminases increased [Recovering/Resolving]
  - Incorrect dose administered [Recovered/Resolved]

NARRATIVE: CASE EVENT DATE: 20190201
